FAERS Safety Report 19565532 (Version 1)
Quarter: 2021Q3

REPORT INFORMATION
  Report Type: Report from Study
  Country: ZA (occurrence: ZA)
  Receive Date: 20210715
  Receipt Date: 20210715
  Transmission Date: 20211014
  Serious: Yes (Death)
  Sender: FDA-Public Use
  Company Number: ZA-ASTRAZENECA-2021A619858

PATIENT
  Sex: Female

DRUGS (12)
  1. EUTHYROX [Concomitant]
     Active Substance: LEVOTHYROXINE SODIUM
     Indication: THYROID DISORDER
     Route: 048
     Dates: end: 202102
  2. ALTOSEC [Concomitant]
     Active Substance: OMEPRAZOLE
  3. BILOCOR [Concomitant]
     Active Substance: BISOPROLOL FUMARATE
  4. UNAT [Concomitant]
     Active Substance: TORSEMIDE
     Indication: HYPERTENSION
     Route: 048
     Dates: end: 202102
  5. ONGLYZA [Suspect]
     Active Substance: SAXAGLIPTIN HYDROCHLORIDE
     Indication: DIABETES MELLITUS
     Route: 048
     Dates: end: 202102
  6. ONE ALPHA [Concomitant]
     Active Substance: ALFACALCIDOL
     Indication: HEREDITARY HYPOPHOSPHATAEMIC RICKETS
     Route: 048
     Dates: end: 202102
  7. SILODYX [Concomitant]
     Active Substance: SILODOSIN
     Indication: BENIGN PROSTATIC HYPERPLASIA
     Route: 048
     Dates: end: 202102
  8. ZARTAN [Concomitant]
     Active Substance: LOSARTAN POTASSIUM
     Indication: HYPERTENSION
     Route: 048
     Dates: end: 202102
  9. ECOTRIN [Concomitant]
     Active Substance: ASPIRIN
     Indication: PRODUCT USED FOR UNKNOWN INDICATION
     Route: 048
     Dates: end: 202102
  10. AMLOC [Concomitant]
     Indication: HYPERTENSION
     Route: 048
     Dates: end: 202102
  11. PURICOS [Concomitant]
     Active Substance: ALLOPURINOL
     Indication: GOUT
     Route: 048
     Dates: end: 202102
  12. FEXO [Concomitant]
     Indication: MULTIPLE ALLERGIES
     Route: 048
     Dates: end: 202102

REACTIONS (1)
  - Death [Fatal]
